FAERS Safety Report 14525512 (Version 3)
Quarter: 2018Q4

REPORT INFORMATION
  Report Type: Report from Study
  Country: IT (occurrence: IT)
  Receive Date: 20180213
  Receipt Date: 20181220
  Transmission Date: 20190204
  Serious: Yes (Death, Other)
  Sender: FDA-Public Use
  Company Number: IT-009507513-1710ITA014060

PATIENT
  Age: 75 Year
  Sex: Male

DRUGS (2)
  1. KEYTRUDA [Suspect]
     Active Substance: PEMBROLIZUMAB
     Indication: LUNG SQUAMOUS CELL CARCINOMA METASTATIC
     Dosage: 200 MG, Q3W (CYCLICAL)
     Route: 042
     Dates: start: 20171003, end: 20171003
  2. KEYTRUDA [Suspect]
     Active Substance: PEMBROLIZUMAB
     Indication: NON-SMALL CELL LUNG CANCER

REACTIONS (2)
  - Embolism [Fatal]
  - Intestinal infarction [Fatal]

NARRATIVE: CASE EVENT DATE: 20171013
